FAERS Safety Report 17966355 (Version 1)
Quarter: 2020Q2

REPORT INFORMATION
  Report Type: Spontaneous
  Country: FR (occurrence: FR)
  Receive Date: 20200630
  Receipt Date: 20200630
  Transmission Date: 20200714
  Serious: Yes (Other)
  Sender: FDA-Public Use
  Company Number: FR-009507513-2006FRA010282

PATIENT
  Age: 45 Year
  Sex: Female

DRUGS (6)
  1. THERALENE [Suspect]
     Active Substance: TRIMEPRAZINE
     Dosage: UNK
     Route: 048
     Dates: start: 202002
  2. VALIUM [Suspect]
     Active Substance: DIAZEPAM
     Dosage: 10 MILLIGRAM, QD
     Route: 048
  3. TRAMADOL HYDROCHLORIDE. [Suspect]
     Active Substance: TRAMADOL HYDROCHLORIDE
     Dosage: UNK
  4. NORSET [Suspect]
     Active Substance: MIRTAZAPINE
     Dosage: 45 MILLIGRAM, QD
     Route: 048
     Dates: start: 202002
  5. SERESTA [Suspect]
     Active Substance: OXAZEPAM
     Dosage: 150 MILLIGRAM, QD
     Route: 048
     Dates: start: 2020
  6. PRAZEPAM [Suspect]
     Active Substance: PRAZEPAM
     Dosage: 30 MILLIGRAM, QD
     Route: 048
     Dates: start: 202002

REACTIONS (1)
  - Drug dependence [Not Recovered/Not Resolved]

NARRATIVE: CASE EVENT DATE: 2020
